FAERS Safety Report 11279831 (Version 3)
Quarter: 2015Q4

REPORT INFORMATION
  Report Type: Spontaneous
  Country: US (occurrence: US)
  Receive Date: 20150717
  Receipt Date: 20151202
  Transmission Date: 20160304
  Serious: No
  Sender: FDA-Public Use
  Company Number: GXBR2015US001607

PATIENT
  Age: 78 Year
  Sex: Male
  Weight: 74.83 kg

DRUGS (3)
  1. BUPROPION HCI TABLETS EXTENDED-RELEASE [Suspect]
     Active Substance: BUPROPION HYDROCHLORIDE
     Indication: DEPRESSION
     Dosage: 150 MG, ONCE3SDO
     Route: 048
     Dates: start: 20150608
  2. CALCIUM [Concomitant]
     Active Substance: CALCIUM
     Indication: MINERAL SUPPLEMENTATION
     Dosage: UNK
  3. VITAMIN D3 [Concomitant]
     Active Substance: CHOLECALCIFEROL
     Indication: VITAMIN SUPPLEMENTATION
     Dosage: UNK DF, UNK

REACTIONS (1)
  - Foreign body [Recovered/Resolved]

NARRATIVE: CASE EVENT DATE: 20150610
